FAERS Safety Report 17461705 (Version 1)
Quarter: 2020Q1

REPORT INFORMATION
  Report Type: Spontaneous
  Country: JP (occurrence: JP)
  Receive Date: 20200226
  Receipt Date: 20200226
  Transmission Date: 20200409
  Serious: Yes (Other)
  Sender: FDA-Public Use
  Company Number: JP-PFIZER INC-2020075016

PATIENT
  Age: 36 Year
  Sex: Male
  Weight: 63 kg

DRUGS (2)
  1. METHYLPREDNISOLONE. [Suspect]
     Active Substance: METHYLPREDNISOLONE
     Indication: URTICARIAL VASCULITIS
     Dosage: 1000 MG, DAILY
     Route: 042
  2. PREDNISOLONE. [Suspect]
     Active Substance: PREDNISOLONE
     Indication: URTICARIAL VASCULITIS
     Dosage: 0.6 MG/KG, DAILY
     Route: 048

REACTIONS (3)
  - Off label use [Unknown]
  - Pneumonia bacterial [Unknown]
  - Product use in unapproved indication [Unknown]
